FAERS Safety Report 20351055 (Version 1)
Quarter: 2022Q1

REPORT INFORMATION
  Report Type: Spontaneous
  Country: US (occurrence: US)
  Receive Date: 20220119
  Receipt Date: 20220119
  Transmission Date: 20220423
  Serious: No
  Sender: FDA-Public Use
  Company Number: US-TAKEDA-2022TUS002369

PATIENT

DRUGS (2)
  1. NINLARO [Suspect]
     Active Substance: IXAZOMIB CITRATE
     Indication: Chronic myeloid leukaemia
     Dosage: 45 MILLIGRAM
     Route: 065
     Dates: start: 202101
  2. NINLARO [Suspect]
     Active Substance: IXAZOMIB CITRATE
     Dosage: 30 MILLIGRAM
     Route: 065
     Dates: start: 202105

REACTIONS (2)
  - Drug resistance [Unknown]
  - Platelet count decreased [Recovered/Resolved]
